FAERS Safety Report 11777985 (Version 1)
Quarter: 2015Q4

REPORT INFORMATION
  Report Type: Spontaneous
  Country: FI (occurrence: FI)
  Receive Date: 20151125
  Receipt Date: 20151125
  Transmission Date: 20160304
  Serious: Yes (Other)
  Sender: FDA-Public Use
  Company Number: FI-PFIZER INC-2015397302

PATIENT
  Age: 75 Year
  Sex: Female

DRUGS (10)
  1. CELECOXIB PFIZER [Suspect]
     Active Substance: CELECOXIB
     Indication: OSTEOARTHRITIS
     Dosage: 100-200 MG DAILY
     Route: 048
     Dates: start: 20151109, end: 20151112
  2. PANADOL FORTE [Concomitant]
     Active Substance: ACETAMINOPHEN\CAFFEINE
     Indication: PAIN
     Dosage: 1-3 G DAILY
     Route: 048
  3. LIPITOR [Concomitant]
     Active Substance: ATORVASTATIN CALCIUM
     Indication: BLOOD CHOLESTEROL
     Dosage: 10 MG, DAILY
     Route: 048
  4. OVESTIN [Concomitant]
     Active Substance: ESTRIOL
     Indication: HORMONE REPLACEMENT THERAPY
     Dosage: 2 MG, DAILY
     Route: 048
  5. PHENOBARBITAL. [Concomitant]
     Active Substance: PHENOBARBITAL
     Indication: MENOPAUSAL SYMPTOMS
     Dosage: 20 MG, DAILY
     Route: 048
  6. BISOPROLOL [Concomitant]
     Active Substance: BISOPROLOL
     Indication: HYPERTENSION
     Dosage: 1.25-2.5 MG DAILY
     Route: 048
  7. CELECOXIB PFIZER [Suspect]
     Active Substance: CELECOXIB
     Indication: INFLAMMATORY PAIN
  8. ERGOTAMIN [Concomitant]
     Indication: MENOPAUSAL SYMPTOMS
     Dosage: 0.3 MG, DAILY
     Route: 048
  9. BELLADONNA EXTRACT [Concomitant]
     Active Substance: BELLADONNA LEAF
     Indication: MENOPAUSAL SYMPTOMS
     Dosage: 10 MG, DAILY
     Route: 048
  10. ARCOXIA [Concomitant]
     Active Substance: ETORICOXIB
     Dosage: 90 MG, FOR ONE WEEK
     Route: 048
     Dates: start: 20151027

REACTIONS (6)
  - Tachycardia [Unknown]
  - Swelling face [Unknown]
  - Skin mass [Unknown]
  - Pruritus [Unknown]
  - Blood pressure increased [Unknown]
  - Feeling hot [Unknown]

NARRATIVE: CASE EVENT DATE: 201511
